FAERS Safety Report 8352736-8 (Version None)
Quarter: 2012Q2

REPORT INFORMATION
  Report Type: 
  Country: None (occurrence: None)
  Receive Date: 20120511
  Receipt Date: 20120502
  Transmission Date: 20120825
  Serious: Yes (Hospitalization)
  Sender: FDA-Public Use
  Company Number: CA-EISAI INC-E7389-02386-CLI-CA

PATIENT
  Sex: Female
  Weight: 74 kg

DRUGS (8)
  1. ONDANSETRON [Concomitant]
     Route: 065
  2. NAPROXEN [Concomitant]
     Indication: BACK PAIN
     Route: 065
  3. TYLENOL (CAPLET) [Concomitant]
     Route: 065
  4. ZOMETA [Concomitant]
     Route: 065
  5. TYLENOL (CAPLET) [Concomitant]
     Indication: BACK PAIN
  6. EPIRUBICIN HYDROCHLORIDE [Suspect]
     Route: 041
     Dates: start: 20120413
  7. GABAPENTIN [Concomitant]
     Route: 065
  8. DECADRON [Concomitant]
     Indication: EYE PAIN
     Route: 065

REACTIONS (1)
  - SEPSIS [None]
